FAERS Safety Report 6561035-6 (Version None)
Quarter: 2010Q1

REPORT INFORMATION
  Report Type: 
  Country: None (occurrence: None)
  Receive Date: 20100130
  Receipt Date: 20091006
  Transmission Date: 20100710
  Serious: No
  Sender: FDA-Public Use
  Company Number: US-ABBOTT-09P-163-0601328-00

PATIENT
  Sex: Female

DRUGS (1)
  1. HUMIRA [Suspect]
     Indication: CROHN'S DISEASE
     Dates: start: 20090416

REACTIONS (7)
  - DIZZINESS [None]
  - DYSPNOEA [None]
  - FATIGUE [None]
  - INJECTION SITE PAIN [None]
  - PAIN [None]
  - STRESS [None]
  - TENSION HEADACHE [None]
